FAERS Safety Report 5575532-3 (Version None)
Quarter: 2007Q4

REPORT INFORMATION
  Report Type: 
  Country: None (occurrence: None)
  Receive Date: 20071227
  Receipt Date: 20071221
  Transmission Date: 20080405
  Serious: Yes (Hospitalization)
  Sender: FDA-Public Use
  Company Number: US-MERCK-0708USA02980

PATIENT
  Age: 62 Year
  Sex: Female

DRUGS (6)
  1. FOSAMAX [Suspect]
     Indication: RESORPTION BONE INCREASED
     Route: 048
     Dates: start: 20010124, end: 20020601
  2. NEURONTIN [Concomitant]
     Indication: SCIATIC NERVE INJURY
     Route: 065
     Dates: start: 20000101
  3. CELEBREX [Concomitant]
     Indication: ARTHRALGIA
     Route: 065
     Dates: start: 20000101
  4. FENTANYL [Concomitant]
     Indication: PAIN
     Route: 065
     Dates: start: 19960101
  5. [THERAPY UNSPECIFIED] [Concomitant]
     Indication: HYPERTENSION
     Route: 065
     Dates: start: 19800101, end: 20070101
  6. CORTICOSTEROIDS (UNSPECIFIED) [Concomitant]
     Route: 065
     Dates: start: 19760101, end: 20070101

REACTIONS (11)
  - ABSCESS [None]
  - BLOOD CHOLESTEROL INCREASED [None]
  - BRUXISM [None]
  - DRUG INTERACTION [None]
  - EXOSTOSIS [None]
  - GASTROOESOPHAGEAL REFLUX DISEASE [None]
  - INTERVERTEBRAL DISC DISORDER [None]
  - OSTEOARTHRITIS [None]
  - SLEEP DISORDER [None]
  - TEMPOROMANDIBULAR JOINT SYNDROME [None]
  - TYPE 2 DIABETES MELLITUS [None]
